FAERS Safety Report 10711448 (Version 2)
Quarter: 2015Q1

REPORT INFORMATION
  Report Type: Report from Study
  Country: US (occurrence: US)
  Receive Date: 20150114
  Receipt Date: 20150121
  Transmission Date: 20150721
  Serious: Yes (Other)
  Sender: FDA-Public Use
  Company Number: US-ABBVIE-15K-163-1331759-00

PATIENT
  Age: 71 Year
  Sex: Male
  Weight: 105.78 kg

DRUGS (1)
  1. HUMIRA [Suspect]
     Active Substance: ADALIMUMAB
     Indication: PSORIATIC ARTHROPATHY
     Route: 065
     Dates: start: 201305

REACTIONS (8)
  - Meniscus injury [Recovering/Resolving]
  - Lower limb fracture [Recovering/Resolving]
  - Psoriasis [Not Recovered/Not Resolved]
  - Arthralgia [Recovering/Resolving]
  - Ligament sprain [Recovered/Resolved]
  - Back pain [Recovered/Resolved]
  - Muscle spasms [Recovered/Resolved]
  - Ligament sprain [Recovering/Resolving]

NARRATIVE: CASE EVENT DATE: 2014
